FAERS Safety Report 9063848 (Version 1)
Quarter: 2013Q1

REPORT INFORMATION
  Report Type: Spontaneous
  Country: TW (occurrence: TW)
  Receive Date: 20130213
  Receipt Date: 20130213
  Transmission Date: 20140127
  Serious: Yes (Other)
  Sender: FDA-Public Use
  Company Number: TW-AMGEN-TWNSP2013009215

PATIENT
  Age: 50 Year
  Sex: Female

DRUGS (6)
  1. ENBREL [Suspect]
     Indication: RHEUMATOID ARTHRITIS
     Dosage: 25 MG, 2 TIMES/WK
     Route: 058
     Dates: start: 20120531, end: 20130131
  2. ARCOXIA [Concomitant]
     Dosage: 60 MG, QD
  3. FOLIC ACID [Concomitant]
     Dosage: 5 MG, QD
  4. GASTER [Concomitant]
     Dosage: 20 MG, QD
  5. METHOTREXATE SODIUM [Concomitant]
     Dosage: 15 MG, WEEKLY
  6. PREDNISOLONE [Concomitant]
     Dosage: 5 MG, QD

REACTIONS (4)
  - Granuloma [Unknown]
  - Haematoma [Unknown]
  - Mycobacterium tuberculosis complex test positive [Unknown]
  - Polyp [Unknown]
